FAERS Safety Report 8718371 (Version 4)
Quarter: 2013Q1

REPORT INFORMATION
  Report Type: Spontaneous
  Country: US (occurrence: US)
  Receive Date: 20120810
  Receipt Date: 20130104
  Transmission Date: 20140127
  Serious: Yes (Other)
  Sender: FDA-Public Use
  Company Number: US-PFIZER INC-2012194464

PATIENT
  Age: 57 Year
  Sex: Female
  Weight: 65 kg

DRUGS (12)
  1. GABAPENTIN [Suspect]
     Indication: NEURALGIA
     Dosage: 200 MG, 3X/DAY
     Dates: start: 20051015
  2. GABAPENTIN [Suspect]
     Indication: SPINAL CORD INJURY
  3. GABAPENTIN [Suspect]
     Indication: DIABETIC NEUROPATHY
  4. LYRICA [Suspect]
     Indication: DIABETIC NEUROPATHY
     Dosage: 200 MG, 3X/DAY
     Route: 048
     Dates: start: 2006
  5. HYDROCODONE W/ACETAMINOPHEN [Concomitant]
     Dosage: 325/10 MG, FOUR OR SIX TIMES A DAY
  6. DILTIAZEM [Concomitant]
     Dosage: 120 MG, 1X/DAY
     Route: 048
  7. BACLOFEN [Concomitant]
     Dosage: 10 MG, 3X/DAY
  8. CYCLOBENZAPRINE [Concomitant]
     Dosage: 10 MG, 3X/DAY
  9. ENOXAPARIN [Concomitant]
     Dosage: UNK
  10. FLUOXETINE [Concomitant]
     Dosage: UNK, 3X/DAY
     Route: 048
  11. NYSTATIN [Concomitant]
     Dosage: UNK, AS NEEDED
  12. WARFARIN [Concomitant]
     Dosage: 5 MG, 1X/DAY
     Route: 048

REACTIONS (5)
  - Neoplasm malignant [Unknown]
  - Muscle atrophy [Unknown]
  - Drug ineffective [Unknown]
  - Pain [Unknown]
  - Weight increased [Unknown]
